FAERS Safety Report 20011388 (Version 1)
Quarter: 2021Q4

REPORT INFORMATION
  Report Type: Spontaneous
  Country: US (occurrence: US)
  Receive Date: 20211029
  Receipt Date: 20211029
  Transmission Date: 20220303
  Serious: Yes (Life-Threatening, Hospitalization, Disabling, Congenital Anomaly, Other)
  Sender: FDA-Public Use
  Company Number: None

PATIENT

DRUGS (1)
  1. KYLEENA [Suspect]
     Active Substance: LEVONORGESTREL

REACTIONS (9)
  - Device ineffective [None]
  - Pregnancy with contraceptive device [None]
  - Ectopic pregnancy [None]
  - Foetal death [None]
  - Grief reaction [None]
  - Depressed mood [None]
  - Pain [None]
  - Near death experience [None]
  - Economic problem [None]

NARRATIVE: CASE EVENT DATE: 20211029
